FAERS Safety Report 23983539 (Version 1)
Quarter: 2024Q2

REPORT INFORMATION
  Report Type: Spontaneous
  Country: PT (occurrence: PT)
  Receive Date: 20240617
  Receipt Date: 20240617
  Transmission Date: 20240715
  Serious: Yes (Life-Threatening, Hospitalization, Other)
  Sender: FDA-Public Use
  Company Number: PT-MLMSERVICE-20240424-PI036836-00044-1

PATIENT
  Age: 58 Year
  Sex: Female

DRUGS (3)
  1. ALPRAZOLAM [Suspect]
     Active Substance: ALPRAZOLAM
     Indication: Major depression
     Dosage: 20 MILLIGRAM, ONCE A DAY (WITHOUT PRESCRIPTION)
     Route: 065
  2. ALPRAZOLAM [Suspect]
     Active Substance: ALPRAZOLAM
     Dosage: 6 MILLIGRAM ((3 MG TWO TWICE DAILY) FOR OVER 10 YEARS)
     Route: 065
  3. ALPRAZOLAM [Suspect]
     Active Substance: ALPRAZOLAM
     Dosage: 30 MILLIGRAM, ONCE A DAY (WITHOUT PRESCRIPTION)
     Route: 065

REACTIONS (5)
  - Generalised tonic-clonic seizure [Recovered/Resolved]
  - Stress cardiomyopathy [Recovered/Resolved]
  - Withdrawal syndrome [Recovered/Resolved]
  - Pulmonary oedema [Recovered/Resolved]
  - Prescription drug used without a prescription [Recovered/Resolved]
